FAERS Safety Report 25214954 (Version 1)
Quarter: 2025Q2

REPORT INFORMATION
  Report Type: Spontaneous
  Country: SA (occurrence: SA)
  Receive Date: 20250418
  Receipt Date: 20250418
  Transmission Date: 20250716
  Serious: Yes (Life-Threatening, Hospitalization, Other)
  Sender: PFIZER
  Company Number: SA-PFIZER INC-PV202500044048

PATIENT
  Sex: Male
  Weight: 1.46 kg

DRUGS (4)
  1. FLUCONAZOLE [Suspect]
     Active Substance: FLUCONAZOLE
     Indication: Prophylaxis
  2. AMPICILLIN [Suspect]
     Active Substance: AMPICILLIN
  3. GENTAMICIN [Suspect]
     Active Substance: GENTAMICIN
  4. CAFFEINE CITRATE [Suspect]
     Active Substance: CAFFEINE CITRATE
     Route: 048

REACTIONS (3)
  - Cryptococcal fungaemia [Recovered/Resolved]
  - Meningitis cryptococcal [Recovered/Resolved]
  - Off label use [Unknown]
